FAERS Safety Report 6748511-8 (Version None)
Quarter: 2010Q2

REPORT INFORMATION
  Report Type: 
  Country: None (occurrence: None)
  Receive Date: 20100527
  Receipt Date: 20100527
  Transmission Date: 20101027
  Serious: Yes (Other)
  Sender: FDA-Public Use
  Company Number: None

PATIENT
  Sex: Female
  Weight: 71.8 kg

DRUGS (3)
  1. WARFARIN SODIUM [Suspect]
     Indication: COAGULATION FACTOR VIII LEVEL INCREASED
     Dosage: 5MG AND 7.5 MG DAILY ORAL
     Route: 048
     Dates: start: 20090101
  2. WARFARIN SODIUM [Suspect]
     Indication: PULMONARY EMBOLISM
     Dosage: 5MG AND 7.5 MG DAILY ORAL
     Route: 048
     Dates: start: 20090101
  3. LUPRON [Concomitant]

REACTIONS (4)
  - CONDITION AGGRAVATED [None]
  - MUSCULOSKELETAL STIFFNESS [None]
  - PAIN IN EXTREMITY [None]
  - VASCULITIS [None]
